APPROVED DRUG PRODUCT: ISOSULFAN BLUE
Active Ingredient: ISOSULFAN BLUE
Strength: 50MG/5ML (10MG/ML)
Dosage Form/Route: SOLUTION;SUBCUTANEOUS
Application: A206831 | Product #001
Applicant: EUGIA PHARMA SPECIALITIES LTD
Approved: Feb 2, 2016 | RLD: No | RS: No | Type: DISCN